FAERS Safety Report 20254267 (Version 1)
Quarter: 2021Q4

REPORT INFORMATION
  Report Type: Spontaneous
  Country: CA (occurrence: CA)
  Receive Date: 20211230
  Receipt Date: 20211230
  Transmission Date: 20220303
  Serious: Yes (Other)
  Sender: FDA-Public Use
  Company Number: CA-NOVARTISPH-NVSC2021CA296758

PATIENT
  Age: 76 Year
  Sex: Male

DRUGS (2)
  1. ERELZI [Suspect]
     Active Substance: ETANERCEPT-SZZS
     Indication: Toxic epidermal necrolysis
     Dosage: 50 MG
     Route: 058
  2. ERELZI [Suspect]
     Active Substance: ETANERCEPT-SZZS
     Indication: Acute generalised exanthematous pustulosis

REACTIONS (4)
  - Citrobacter infection [Unknown]
  - Electrolyte imbalance [Unknown]
  - Proteus infection [Unknown]
  - Off label use [Unknown]
